FAERS Safety Report 25334903 (Version 1)
Quarter: 2025Q2

REPORT INFORMATION
  Report Type: Spontaneous
  Country: FR (occurrence: FR)
  Receive Date: 20250520
  Receipt Date: 20250520
  Transmission Date: 20250716
  Serious: Yes (Hospitalization, Other)
  Sender: SANOFI AVENTIS
  Company Number: None

PATIENT
  Age: 67 Year
  Sex: Male
  Weight: 96.8 kg

DRUGS (24)
  1. ELOCTA [Suspect]
     Active Substance: EFMOROCTOCOG ALFA
     Indication: Factor VIII deficiency
     Route: 040
     Dates: start: 20250425, end: 20250425
  2. ELOCTA [Suspect]
     Active Substance: EFMOROCTOCOG ALFA
     Indication: Factor VIII deficiency
     Route: 040
     Dates: start: 20250425, end: 20250425
  3. ELOCTA [Suspect]
     Active Substance: EFMOROCTOCOG ALFA
     Route: 040
     Dates: start: 20250425, end: 20250425
  4. ELOCTA [Suspect]
     Active Substance: EFMOROCTOCOG ALFA
     Route: 040
     Dates: start: 20250425, end: 20250425
  5. ELOCTA [Suspect]
     Active Substance: EFMOROCTOCOG ALFA
     Route: 040
     Dates: start: 20250426, end: 20250426
  6. ELOCTA [Suspect]
     Active Substance: EFMOROCTOCOG ALFA
     Route: 040
     Dates: start: 20250426, end: 20250426
  7. ELOCTA [Suspect]
     Active Substance: EFMOROCTOCOG ALFA
     Route: 040
     Dates: start: 20250427, end: 20250427
  8. ELOCTA [Suspect]
     Active Substance: EFMOROCTOCOG ALFA
     Route: 040
     Dates: start: 20250427, end: 20250427
  9. ELOCTA [Suspect]
     Active Substance: EFMOROCTOCOG ALFA
     Route: 040
     Dates: start: 20250428, end: 20250428
  10. ELOCTA [Suspect]
     Active Substance: EFMOROCTOCOG ALFA
     Route: 040
     Dates: start: 20250428, end: 20250428
  11. ELOCTA [Suspect]
     Active Substance: EFMOROCTOCOG ALFA
     Route: 040
     Dates: start: 20250428, end: 20250428
  12. ELOCTA [Suspect]
     Active Substance: EFMOROCTOCOG ALFA
     Route: 040
     Dates: start: 20250428, end: 20250428
  13. ELOCTA [Suspect]
     Active Substance: EFMOROCTOCOG ALFA
     Route: 040
     Dates: start: 20250429, end: 20250429
  14. ELOCTA [Suspect]
     Active Substance: EFMOROCTOCOG ALFA
     Route: 040
     Dates: start: 20250429, end: 20250429
  15. ELOCTA [Suspect]
     Active Substance: EFMOROCTOCOG ALFA
     Route: 040
     Dates: start: 20250430, end: 20250430
  16. ELOCTA [Suspect]
     Active Substance: EFMOROCTOCOG ALFA
     Route: 040
     Dates: start: 20250430, end: 20250430
  17. ELOCTA [Suspect]
     Active Substance: EFMOROCTOCOG ALFA
     Dosage: 2000 IU, QD
     Route: 040
     Dates: start: 20250501, end: 20250505
  18. ELOCTA [Suspect]
     Active Substance: EFMOROCTOCOG ALFA
     Dosage: 2000 IU, QD
     Route: 040
     Dates: start: 20250501, end: 20250505
  19. ELOCTA [Suspect]
     Active Substance: EFMOROCTOCOG ALFA
     Dosage: 2000 IU, QD
     Route: 040
     Dates: start: 20250508
  20. ELOCTA [Suspect]
     Active Substance: EFMOROCTOCOG ALFA
     Dosage: 2000 IU, QD
     Route: 040
     Dates: start: 20250508
  21. VALSARTAN [Concomitant]
     Active Substance: VALSARTAN
     Indication: Hypertension
     Dosage: 160 MG, QD
     Route: 048
  22. EBASTINE [Concomitant]
     Active Substance: EBASTINE
     Indication: Hypersensitivity
     Route: 048
  23. LEVOTHYROXINE [Concomitant]
     Active Substance: LEVOTHYROXINE
     Indication: Thyroid mass
     Dosage: 225 UG, QD
     Route: 048
  24. SILODOSIN [Concomitant]
     Active Substance: SILODOSIN
     Indication: Benign prostatic hyperplasia
     Dosage: 8 MG, QD
     Route: 048

REACTIONS (1)
  - Ischaemic stroke [Recovering/Resolving]

NARRATIVE: CASE EVENT DATE: 20250425
